FAERS Safety Report 12907804 (Version 1)
Quarter: 2016Q4

REPORT INFORMATION
  Report Type: Spontaneous
  Country: US (occurrence: US)
  Receive Date: 20161102
  Receipt Date: 20161102
  Transmission Date: 20170207
  Serious: Yes (Disabling)
  Sender: FDA-Public Use
  Company Number: None

PATIENT
  Age: 64 Year
  Sex: Male
  Weight: 78.75 kg

DRUGS (4)
  1. LORITAB [Concomitant]
  2. TAMSULOSIN [Suspect]
     Active Substance: TAMSULOSIN
     Indication: BENIGN PROSTATIC HYPERPLASIA
     Dosage: ?          QUANTITY:60 CAPSULE(S);?
     Route: 048
     Dates: start: 20161005, end: 20161005
  3. MULTI-VITAMINS [Concomitant]
  4. CITRACEL [Concomitant]

REACTIONS (1)
  - Diplopia [None]

NARRATIVE: CASE EVENT DATE: 20161005
